FAERS Safety Report 6907606-6 (Version None)
Quarter: 2010Q3

REPORT INFORMATION
  Report Type: 
  Country: None (occurrence: None)
  Receive Date: 20100805
  Receipt Date: 20100730
  Transmission Date: 20110219
  Serious: No
  Sender: FDA-Public Use
  Company Number: 2009BI027626

PATIENT
  Age: 34 Year
  Sex: Female

DRUGS (2)
  1. TYSABRI [Suspect]
     Indication: MULTIPLE SCLEROSIS
     Route: 042
     Dates: start: 20080121
  2. BENADRYL [Concomitant]
     Indication: PREMEDICATION

REACTIONS (6)
  - CYSTITIS [None]
  - EAR INFECTION [None]
  - HERPES ZOSTER [None]
  - HYPERSENSITIVITY [None]
  - RASH [None]
  - STAPHYLOCOCCAL INFECTION [None]
